FAERS Safety Report 20593244 (Version 2)
Quarter: 2025Q2

REPORT INFORMATION
  Report Type: Spontaneous
  Country: ES (occurrence: ES)
  Receive Date: 20220315
  Receipt Date: 20250609
  Transmission Date: 20250716
  Serious: Yes (Hospitalization, Other)
  Sender: AUROBINDO
  Company Number: ES-SA-2022SA056076

PATIENT
  Age: 61 Year
  Sex: Female

DRUGS (10)
  1. ENTECAVIR [Suspect]
     Active Substance: ENTECAVIR
     Indication: Hepatitis B reactivation
     Route: 065
  2. AZATHIOPRINE [Suspect]
     Active Substance: AZATHIOPRINE
     Indication: Hepatic haematoma
     Dosage: 1.5 MILLIGRAM/KILOGRAM, ONCE A DAY (1.5 MG/KG, QD)
     Route: 065
  3. FERROUS SULFATE [Suspect]
     Active Substance: FERROUS SULFATE
     Indication: Autoimmune hepatitis
     Dosage: 80 MILLIGRAM, ONCE A DAY
     Route: 048
  4. TRANEXAMIC ACID [Suspect]
     Active Substance: TRANEXAMIC ACID
     Indication: Autoimmune hepatitis
     Dosage: 500 MILLIGRAM, 3 TIMES A DAY
     Route: 042
  5. TRANEXAMIC ACID [Suspect]
     Active Substance: TRANEXAMIC ACID
     Dosage: 1 GRAM, 3 TIMES A DAY
     Route: 048
  6. PREDNISONE [Concomitant]
     Active Substance: PREDNISONE
     Indication: Hepatitis B reactivation
     Dosage: 1 MILLIGRAM/KILOGRAM, ONCE A DAY(1 MG/KG, QD )
     Route: 048
  7. URSODIOL [Concomitant]
     Active Substance: URSODIOL
     Indication: Hepatitis B reactivation
     Route: 065
  8. FERROUS SULFATE [Concomitant]
     Active Substance: FERROUS SULFATE
     Indication: Autoimmune hepatitis
     Route: 065
  9. TRANEXAMIC ACID [Concomitant]
     Active Substance: TRANEXAMIC ACID
     Indication: Haematoma muscle
     Route: 048
  10. TRANEXAMIC ACID [Concomitant]
     Active Substance: TRANEXAMIC ACID
     Route: 042

REACTIONS (4)
  - Neutropenia [Unknown]
  - Subcapsular hepatic haematoma [Unknown]
  - Product use in unapproved indication [Unknown]
  - Off label use [Unknown]
